FAERS Safety Report 24888388 (Version 2)
Quarter: 2025Q3

REPORT INFORMATION
  Report Type: Spontaneous
  Country: US (occurrence: US)
  Receive Date: 20250127
  Receipt Date: 20250818
  Transmission Date: 20251021
  Serious: Yes (Hospitalization, Other)
  Sender: COOPERSURGICAL
  Company Number: US-COOPERSURGICAL, INC.-2025CPS000314

PATIENT
  Sex: Female
  Weight: 86.168 kg

DRUGS (1)
  1. PARAGARD T 380A [Suspect]
     Active Substance: COPPER
     Indication: Contraception
     Route: 015
     Dates: start: 20140410

REACTIONS (35)
  - Hysterectomy [Recovered/Resolved]
  - Seizure [Not Recovered/Not Resolved]
  - Infertility female [Not Recovered/Not Resolved]
  - Laparotomy [Recovered/Resolved]
  - Reproductive complication associated with device [Not Recovered/Not Resolved]
  - Facial paralysis [Recovered/Resolved]
  - Surgery [Recovered/Resolved]
  - Device breakage [Recovered/Resolved]
  - Foreign body in reproductive tract [Recovered/Resolved]
  - Complication of device removal [Recovered/Resolved]
  - Embedded device [Recovered/Resolved]
  - Pelvic abscess [Recovered/Resolved]
  - Uterine perforation [Recovered/Resolved]
  - Sepsis [Unknown]
  - Depression [Not Recovered/Not Resolved]
  - Amnesia [Not Recovered/Not Resolved]
  - Neoplasm [Not Recovered/Not Resolved]
  - Emotional distress [Unknown]
  - Anxiety [Unknown]
  - Procedural pain [Recovered/Resolved]
  - Pollakiuria [Unknown]
  - Dysuria [Unknown]
  - Headache [Unknown]
  - Constipation [Unknown]
  - Pain [Not Recovered/Not Resolved]
  - Pelvic pain [Recovered/Resolved]
  - Pelvic adhesions [Unknown]
  - Abnormal uterine bleeding [Unknown]
  - Vaginal discharge [Unknown]
  - Device expulsion [Recovered/Resolved]
  - Muscle spasms [Unknown]
  - Back pain [Unknown]
  - Abdominal pain [Unknown]
  - Vaginal haemorrhage [Recovered/Resolved]
  - Device dislocation [Recovered/Resolved]

NARRATIVE: CASE EVENT DATE: 20150101
